FAERS Safety Report 16287872 (Version 2)
Quarter: 2019Q2

REPORT INFORMATION
  Report Type: Spontaneous
  Country: CZ (occurrence: CZ)
  Receive Date: 20190508
  Receipt Date: 20190517
  Transmission Date: 20190711
  Serious: Yes (Life-Threatening, Other)
  Sender: FDA-Public Use
  Company Number: PHHY2019CZ103898

PATIENT
  Age: 53 Year
  Sex: Male

DRUGS (5)
  1. PAZOPANIB [Suspect]
     Active Substance: PAZOPANIB
     Dosage: 600 MG, QD
     Route: 065
     Dates: end: 201903
  2. PAZOPANIB [Suspect]
     Active Substance: PAZOPANIB
     Indication: RETROPERITONEAL CANCER
     Dosage: 800 MG, QD
     Route: 065
     Dates: start: 201703
  3. DOXORUBICIN [Suspect]
     Active Substance: DOXORUBICIN
     Indication: RETROPERITONEAL CANCER
     Dosage: 150 MG, UNK
     Route: 065
     Dates: start: 201610, end: 201612
  4. IFOSFAMIDE. [Suspect]
     Active Substance: IFOSFAMIDE
     Dosage: DOSE REDUCTION BY 25%
     Route: 065
  5. IFOSFAMIDE. [Suspect]
     Active Substance: IFOSFAMIDE
     Indication: RETROPERITONEAL CANCER
     Route: 065

REACTIONS (8)
  - Retroperitoneal cancer [Not Recovered/Not Resolved]
  - Malignant neoplasm progression [Not Recovered/Not Resolved]
  - Second primary malignancy [Not Recovered/Not Resolved]
  - Myelodysplastic syndrome [Not Recovered/Not Resolved]
  - Thrombocytosis [Not Recovered/Not Resolved]
  - Anaemia [Not Recovered/Not Resolved]
  - Metastases to liver [Not Recovered/Not Resolved]
  - Diarrhoea [Recovered/Resolved]

NARRATIVE: CASE EVENT DATE: 201612
